FAERS Safety Report 8282800-3 (Version None)
Quarter: 2012Q2

REPORT INFORMATION
  Report Type: 
  Country: None (occurrence: None)
  Receive Date: 20120413
  Receipt Date: 20120402
  Transmission Date: 20120825
  Serious: Yes (Hospitalization)
  Sender: FDA-Public Use
  Company Number: KR-ROCHE-1039711

PATIENT
  Sex: Female
  Weight: 48.7 kg

DRUGS (13)
  1. DOCETAXEL [Suspect]
     Indication: GASTRIC CANCER
     Dosage: DATE OF LAST DOSE PRIOR TO SAE: 23-MAR- 2012
     Route: 042
     Dates: start: 20120114
  2. PIOGLITAZONE [Concomitant]
     Dates: start: 20020510
  3. ARTEMISIA ASIATICA [Concomitant]
     Dates: start: 20120125
  4. THIOCTIC ACID [Concomitant]
     Dates: start: 20020510
  5. CISPLATIN [Suspect]
     Indication: GASTRIC CANCER
     Dosage: DATE OF LAST DOSE PRIOR TO SAE: 23 MAR 2012
     Route: 042
     Dates: start: 20120114
  6. XELODA [Suspect]
     Dosage: DATE OF LAST DOSE PRIOR TO SAE: 23 MAR 2012
     Route: 048
     Dates: start: 20120323, end: 20120331
  7. METFORMIN HCL [Concomitant]
     Dates: start: 20020510
  8. AVASTIN [Suspect]
     Indication: GASTRIC CANCER
     Dosage: DATE OF LAST DOSE PRIOR TO SAE: 23 MAR 2012
     Route: 042
     Dates: start: 20120114
  9. ATORVASTATIN [Concomitant]
     Dates: start: 20020510
  10. MEGESTROL ACETATE [Concomitant]
     Dates: start: 20120114
  11. METOCLOPRAMIDE/PANCREATIN [Concomitant]
     Dates: start: 20120106
  12. XELODA [Suspect]
     Indication: GASTRIC CANCER
     Dosage: DATE OF LAST DOSE PRIOR TO SAE: 03 FEB 2012
     Route: 048
     Dates: start: 20120114, end: 20120217
  13. GLIMEPIRIDE [Concomitant]
     Dates: start: 20020510

REACTIONS (2)
  - FEBRILE NEUTROPENIA [None]
  - GASTROINTESTINAL PERFORATION [None]
